FAERS Safety Report 10208066 (Version 1)
Quarter: 2014Q2

REPORT INFORMATION
  Report Type: Spontaneous
  Country: US (occurrence: None)
  Receive Date: 20140528
  Receipt Date: 20140528
  Transmission Date: 20141212
  Serious: Yes (Other)
  Sender: FDA-Public Use
  Company Number: None

PATIENT
  Sex: Female

DRUGS (1)
  1. AFINITOR 5 MG NOVARTIS [Suspect]
     Indication: BONE CANCER
     Route: 048

REACTIONS (1)
  - Liver function test abnormal [None]
